FAERS Safety Report 9408860 (Version 1)
Quarter: 2013Q3

REPORT INFORMATION
  Report Type: Spontaneous
  Country: US (occurrence: US)
  Receive Date: 20130719
  Receipt Date: 20130719
  Transmission Date: 20140515
  Serious: Yes (Death)
  Sender: FDA-Public Use
  Company Number: US-ROCHE-1249692

PATIENT
  Sex: Male

DRUGS (4)
  1. ZELBORAF [Suspect]
     Indication: MALIGNANT MELANOMA
     Route: 065
  2. RED YEAST RICE [Concomitant]
     Dosage: EACH MORNING
     Route: 065
     Dates: start: 20110101
  3. OMEGA 3 [Concomitant]
     Route: 065
     Dates: start: 20110101
  4. OCUVITE [Concomitant]
     Route: 065
     Dates: start: 20110101

REACTIONS (1)
  - Death [Fatal]
